FAERS Safety Report 12847377 (Version 4)
Quarter: 2017Q4

REPORT INFORMATION
  Report Type: Spontaneous
  Country: US (occurrence: US)
  Receive Date: 20161014
  Receipt Date: 20171205
  Transmission Date: 20180320
  Serious: Yes (Hospitalization, Other)
  Sender: FDA-Public Use
  Company Number: US-GLAXOSMITHKLINE-US2016GSK149744

PATIENT
  Sex: Male

DRUGS (1)
  1. VOLTAREN [Suspect]
     Active Substance: DICLOFENAC SODIUM
     Indication: ARTHRALGIA
     Dosage: 2 G, QID
     Route: 061

REACTIONS (14)
  - Headache [Unknown]
  - Furuncle [Unknown]
  - Burns second degree [Unknown]
  - Chest pain [Unknown]
  - Chills [Unknown]
  - Erythema [Unknown]
  - Blister [Unknown]
  - Cellulitis [Unknown]
  - Swelling [Unknown]
  - Pyrexia [Unknown]
  - Injury [Unknown]
  - Subcutaneous emphysema [Unknown]
  - Blood blister [Unknown]
  - Pain in extremity [Unknown]
